FAERS Safety Report 10161652 (Version 1)
Quarter: 2014Q2

REPORT INFORMATION
  Report Type: Spontaneous
  Country: US (occurrence: None)
  Receive Date: 20140508
  Receipt Date: 20140508
  Transmission Date: 20141212
  Serious: Yes (Life-Threatening)
  Sender: FDA-Public Use
  Company Number: None

PATIENT
  Age: 02 Year
  Sex: Male

DRUGS (2)
  1. PROBIOTIC [Suspect]
     Dosage: 4 OUNCES
     Route: 048
     Dates: start: 20131002, end: 20131011
  2. PLACEBO [Suspect]
     Dosage: 4 OUNCES
     Route: 048
     Dates: start: 20131002, end: 20131011

REACTIONS (3)
  - Pain in extremity [None]
  - Vomiting [None]
  - Pneumonia [None]
